FAERS Safety Report 6371498-7 (Version None)
Quarter: 2009Q3

REPORT INFORMATION
  Report Type: 
  Country: None (occurrence: None)
  Receive Date: 20090923
  Receipt Date: 20071105
  Transmission Date: 20100115
  Serious: No
  Sender: FDA-Public Use
  Company Number: US-ASTRAZENECA-2007UW10516

PATIENT
  Age: 15276 Day
  Sex: Female
  Weight: 83.9 kg

DRUGS (18)
  1. SEROQUEL [Suspect]
     Indication: HALLUCINATION, VISUAL
     Dosage: 200 MG TO 300 MG
     Route: 048
     Dates: start: 19971001
  2. SEROQUEL [Suspect]
     Indication: HALLUCINATION, AUDITORY
     Dosage: 200 MG TO 300 MG
     Route: 048
     Dates: start: 19971001
  3. SEROQUEL [Suspect]
     Indication: DEPRESSION
     Dosage: 200 MG TO 300 MG
     Route: 048
     Dates: start: 19971001
  4. SEROQUEL [Suspect]
     Indication: HALLUCINATION
     Dosage: 200 MG TO 300 MG
     Route: 048
     Dates: start: 19971001
  5. SEROQUEL [Suspect]
     Route: 048
     Dates: start: 19990101, end: 20000101
  6. SEROQUEL [Suspect]
     Route: 048
     Dates: start: 19990101, end: 20000101
  7. SEROQUEL [Suspect]
     Route: 048
     Dates: start: 19990101, end: 20000101
  8. SEROQUEL [Suspect]
     Route: 048
     Dates: start: 19990101, end: 20000101
  9. GEODON [Concomitant]
     Dates: start: 20030917
  10. DEPAKOTE ER [Concomitant]
     Indication: STRESS
     Dosage: 500 MG TO 1000 MG
     Dates: start: 19970101
  11. DIVALPROEX SODIUM [Concomitant]
     Indication: ANGER
  12. DIPHENHYDRAMINE HCL [Concomitant]
     Dates: start: 20030718
  13. GLIPIZIDE [Concomitant]
     Indication: DIABETES MELLITUS
     Dates: start: 19990101
  14. HYDROCODONE BITARTRATE AND ACETAMINOPHEN [Concomitant]
     Dosage: 5 / 500 MG
     Dates: start: 20030805
  15. BENAZEPRIL HYDROCHLORIDE [Concomitant]
     Indication: HYPERTENSION
     Dates: start: 19990101
  16. NAPROXEN [Concomitant]
     Indication: PAIN
     Dosage: 250 MG, 2 TABS TWICE DAILY
     Dates: start: 19970101
  17. PAXIL [Concomitant]
     Indication: DEPRESSION
     Dosage: 20 MG, 3 TABS DAILY
     Dates: start: 19970101
  18. OLANZAPINE [Concomitant]
     Indication: MENTAL DISORDER

REACTIONS (2)
  - DIABETES MELLITUS [None]
  - TYPE 2 DIABETES MELLITUS [None]
